FAERS Safety Report 8579962-7 (Version None)
Quarter: 2012Q2

REPORT INFORMATION
  Report Type: 
  Country: None (occurrence: None)
  Receive Date: 20120423
  Receipt Date: 20090602
  Transmission Date: 20120825
  Serious: Yes (Hospitalization)
  Sender: FDA-Public Use
  Company Number: PHHY2009US66664

PATIENT
  Age: 7 Year
  Sex: Male

DRUGS (4)
  1. PENICILLIN [Concomitant]
  2. EXJADE [Suspect]
     Dosage: 500 MG ; 1000 MG
  3. FOLIC ACID [Concomitant]
  4. ALBUTEROL [Concomitant]

REACTIONS (3)
  - CONTUSION [None]
  - SKIN EXFOLIATION [None]
  - SICKLE CELL ANAEMIA WITH CRISIS [None]
